FAERS Safety Report 6263087-X (Version None)
Quarter: 2009Q3

REPORT INFORMATION
  Report Type: 
  Country: None (occurrence: None)
  Receive Date: 20090710
  Receipt Date: 20090630
  Transmission Date: 20100115
  Serious: Yes (Hospitalization)
  Sender: FDA-Public Use
  Company Number: PL-PFIZER INC-2009234577

PATIENT
  Age: 54 Year

DRUGS (7)
  1. SUNITINIB MALATE [Suspect]
     Indication: BREAST CANCER
     Dosage: 37.5 MG (MOST RECENT DOSE), 1X/DAY
     Route: 048
     Dates: start: 20090207
  2. *CAPECITABINE [Suspect]
     Indication: BREAST CANCER
     Dosage: 1150 MG, DAY 1-14 EVERY 3 WEEKS
     Route: 048
     Dates: start: 20090206
  3. EUTHYROX [Concomitant]
     Indication: HYPOTHYROIDISM
     Dosage: 50 UG, 1X/DAY
     Dates: start: 20020101
  4. RANIGAST [Concomitant]
     Indication: PROPHYLAXIS AGAINST GASTROINTESTINAL ULCER
     Dosage: 150 MG, UNK
     Dates: start: 20090312, end: 20090629
  5. NO-SPA [Concomitant]
     Indication: ABDOMINAL PAIN UPPER
     Dosage: 40 MG, 2X/DAY
     Dates: start: 20090312, end: 20090629
  6. CYCLONAMINE [Concomitant]
     Indication: THROMBOCYTOPENIA
     Dosage: 250 MG, 2X/DAY
     Dates: start: 20090227, end: 20090629
  7. ACARD [Concomitant]
     Indication: THROMBOSIS PROPHYLAXIS
     Dosage: 75 MG, 1X/DAY
     Dates: start: 20090608, end: 20090629

REACTIONS (1)
  - SUBILEUS [None]
